FAERS Safety Report 9368109 (Version 1)
Quarter: 2013Q2

REPORT INFORMATION
  Report Type: Spontaneous
  Country: US (occurrence: US)
  Receive Date: 20130625
  Receipt Date: 20130625
  Transmission Date: 20140414
  Serious: No
  Sender: FDA-Public Use
  Company Number: US-ASTELLAS-2012US011316

PATIENT
  Sex: Female
  Weight: 92 kg

DRUGS (4)
  1. VESICARE [Suspect]
     Indication: URINARY INCONTINENCE
     Dosage: 10 MG, UID/QD
     Route: 048
  2. COUMADIN                           /00014802/ [Concomitant]
     Indication: MEDICAL DEVICE COMPLICATION
     Dosage: 2 MG  (ALTERNATE 2 AND 3 MG)
     Route: 048
  3. COUMADIN                           /00014802/ [Concomitant]
     Dosage: 3 MG, UID/QD (ALTERNATE 2 AND 3 MG)
     Route: 048
  4. GLYBURIDE [Concomitant]
     Indication: BLOOD GLUCOSE ABNORMAL
     Dosage: 2 MG, UID/QD
     Route: 048

REACTIONS (6)
  - Urine odour abnormal [Unknown]
  - Skin fissures [Recovered/Resolved]
  - Skin wrinkling [Recovered/Resolved]
  - Dry eye [Unknown]
  - Vision blurred [Unknown]
  - Dry mouth [Unknown]
